FAERS Safety Report 4367354-6 (Version None)
Quarter: 2004Q2

REPORT INFORMATION
  Report Type: 
  Country: None (occurrence: None)
  Receive Date: 20040520
  Receipt Date: 20040506
  Transmission Date: 20050107
  Serious: Yes (Other)
  Sender: FDA-Public Use
  Company Number: 2003-03004

PATIENT
  Sex: Female

DRUGS (1)
  1. TUBERSOL [Suspect]
     Indication: TUBERCULIN TEST
     Dosage: ARM L
     Route: 023
     Dates: start: 20030703

REACTIONS (6)
  - ANGIONEUROTIC OEDEMA [None]
  - EYE SWELLING [None]
  - INJECTION SITE ERYTHEMA [None]
  - INJECTION SITE INFLAMMATION [None]
  - INJECTION SITE SWELLING [None]
  - OEDEMA PERIPHERAL [None]
